FAERS Safety Report 25030487 (Version 1)
Quarter: 2025Q1

REPORT INFORMATION
  Report Type: Spontaneous
  Country: ES (occurrence: ES)
  Receive Date: 20250303
  Receipt Date: 20250303
  Transmission Date: 20250408
  Serious: Yes (Hospitalization)
  Sender: SANDOZ
  Company Number: ES-NORMON-202500092

PATIENT
  Age: 44 Year
  Sex: Female

DRUGS (1)
  1. CIPROFLOXACIN [Suspect]
     Active Substance: CIPROFLOXACIN
     Indication: Urinary tract infection
     Dosage: 500 MG (1 TABLET EVERY 12 HOURS)
     Route: 048
     Dates: start: 20250121, end: 20250128

REACTIONS (2)
  - Pain [Recovered/Resolved]
  - Abdominal pain [Not Recovered/Not Resolved]

NARRATIVE: CASE EVENT DATE: 20250125
